FAERS Safety Report 10066994 (Version 1)
Quarter: 2014Q2

REPORT INFORMATION
  Report Type: Spontaneous
  Country: JP (occurrence: JP)
  Receive Date: 20140409
  Receipt Date: 20140409
  Transmission Date: 20141212
  Serious: Yes (Other)
  Sender: FDA-Public Use
  Company Number: JP-ORION CORPORATION ORION PHARMA-ENT 2014-0053

PATIENT
  Age: 65 Year
  Sex: Male

DRUGS (6)
  1. ENTACAPONE [Suspect]
     Route: 065
  2. LEVODOPA [Suspect]
     Route: 065
  3. ROPINIROLE [Suspect]
     Route: 065
  4. CABERGOLINE [Suspect]
     Route: 065
  5. ZONISAMIDE [Suspect]
     Route: 065
  6. DROXIDOPA [Suspect]
     Route: 065

REACTIONS (3)
  - Jealous delusion [Recovered/Resolved]
  - Drug effect decreased [Unknown]
  - Hallucination, visual [Unknown]
